FAERS Safety Report 5727095-7 (Version None)
Quarter: 2008Q2

REPORT INFORMATION
  Report Type: 
  Country: None (occurrence: None)
  Receive Date: 20080505
  Receipt Date: 20080421
  Transmission Date: 20081010
  Serious: Yes (Hospitalization)
  Sender: FDA-Public Use
  Company Number: FR-JNJFOC-20080405644

PATIENT
  Age: 63 Year
  Sex: Female

DRUGS (13)
  1. TAVANIC [Suspect]
     Indication: SEPSIS
     Route: 042
  2. TAZOCILLINE [Suspect]
     Indication: LUNG DISORDER
     Route: 042
  3. AMIKACIN [Concomitant]
     Indication: LUNG DISORDER
     Route: 042
  4. FUROSEMIDE [Concomitant]
     Indication: HYPERTENSION
     Route: 048
  5. COAPROVEL [Concomitant]
     Indication: HYPERTENSION
     Route: 048
  6. AMLOR [Concomitant]
     Indication: HYPERTENSION
     Route: 048
  7. NAFTILUX [Concomitant]
     Indication: ARTERIAL DISORDER
     Route: 048
  8. LORAZEPAM [Concomitant]
     Indication: ANXIETY
     Route: 048
  9. BISOPROLOL FUMARATE [Concomitant]
     Indication: HYPERTENSION
  10. PRAVASTATIN [Concomitant]
  11. ASPIRIN [Concomitant]
     Indication: PROPHYLAXIS
  12. PANTOPRAZOLE SODIUM [Concomitant]
  13. OXAZEPAM [Concomitant]

REACTIONS (1)
  - CHOLESTASIS [None]
